FAERS Safety Report 8140046 (Version 4)
Quarter: 2015Q3

REPORT INFORMATION
  Report Type: Spontaneous
  Country: US (occurrence: US)
  Receive Date: 20110916
  Receipt Date: 20150708
  Transmission Date: 20151125
  Serious: Yes (Other)
  Sender: FDA-Public Use
  Company Number: US-BAYER-201031250NA

PATIENT
  Age: 26 Year
  Sex: Female
  Weight: 77 kg

DRUGS (2)
  1. LO LOESTRIN FE [Concomitant]
     Active Substance: ETHINYL ESTRADIOL\NORETHINDRONE ACETATE
  2. MIRENA [Suspect]
     Active Substance: LEVONORGESTREL
     Indication: CONTRACEPTION
     Dosage: 20 MCG/24HR, CONT
     Route: 015
     Dates: start: 200803, end: 20111014

REACTIONS (11)
  - Uterine perforation [None]
  - Device issue [None]
  - Off label use of device [None]
  - Device dislocation [None]
  - Amenorrhoea [None]
  - Pain [None]
  - Emotional distress [None]
  - Injury [None]
  - Device difficult to use [None]
  - Genital haemorrhage [None]
  - Coital bleeding [None]

NARRATIVE: CASE EVENT DATE: 201107
